FAERS Safety Report 9652883 (Version 1)
Quarter: 2013Q4

REPORT INFORMATION
  Report Type: Spontaneous
  Country: US (occurrence: US)
  Receive Date: 20131029
  Receipt Date: 20131029
  Transmission Date: 20140711
  Serious: Yes (Hospitalization)
  Sender: FDA-Public Use
  Company Number: US-JNJFOC-20131014042

PATIENT
  Age: 77 Year
  Sex: Female
  Weight: 61.24 kg

DRUGS (6)
  1. ULTRACET [Suspect]
     Indication: PAIN
     Route: 048
     Dates: start: 2011
  2. TRAMADOL [Suspect]
     Indication: PAIN
     Route: 065
     Dates: start: 2013, end: 2013
  3. NEXIUM [Concomitant]
     Indication: GASTRIC DISORDER
     Route: 048
  4. METFORMIN [Concomitant]
     Indication: PRODUCT USED FOR UNKNOWN INDICATION
     Route: 048
  5. ZOCOR [Concomitant]
     Indication: BLOOD PRESSURE
     Route: 048
  6. ZIAC [Concomitant]
     Indication: BLOOD PRESSURE
     Route: 048

REACTIONS (5)
  - Osteoarthritis [Recovered/Resolved]
  - Bronchitis [Recovering/Resolving]
  - Abdominal discomfort [Recovered/Resolved]
  - Pain [Not Recovered/Not Resolved]
  - Energy increased [Not Recovered/Not Resolved]
